FAERS Safety Report 24024863 (Version 1)
Quarter: 2024Q2

REPORT INFORMATION
  Report Type: Report from Study
  Country: CN (occurrence: CN)
  Receive Date: 20240628
  Receipt Date: 20240628
  Transmission Date: 20240716
  Serious: No
  Sender: FDA-Public Use
  Company Number: CN-ROCHE-3388335

PATIENT
  Age: 68 Year
  Sex: Female

DRUGS (1)
  1. ALECTINIB [Suspect]
     Active Substance: ALECTINIB
     Indication: Non-small cell lung cancer metastatic
     Dosage: 224 CAPSULES PER BOX
     Route: 048
     Dates: start: 20221228

REACTIONS (1)
  - Blood bilirubin increased [Recovering/Resolving]
